FAERS Safety Report 17212307 (Version 1)
Quarter: 2019Q4

REPORT INFORMATION
  Report Type: Spontaneous
  Country: US (occurrence: US)
  Receive Date: 20191230
  Receipt Date: 20191230
  Transmission Date: 20200122
  Serious: No
  Sender: FDA-Public Use
  Company Number: US-ORIENT PHARMA-000012

PATIENT
  Age: 71 Year
  Sex: Female
  Weight: 68.04 kg

DRUGS (9)
  1. CARISOPRODOL ORIENT PHARMA [Suspect]
     Active Substance: CARISOPRODOL
     Indication: MUSCLE SPASMS
     Dosage: STRENGTH: 350 MG
     Route: 048
     Dates: start: 20190406
  2. ASCORBIC ACID. [Concomitant]
     Active Substance: ASCORBIC ACID
  3. TYLENOL [Concomitant]
     Active Substance: ACETAMINOPHEN
  4. VALIUM [Concomitant]
     Active Substance: DIAZEPAM
  5. MENATETRENONE [Concomitant]
     Active Substance: MENATETRENONE
  6. MAGNESIUM HYDROXIDE. [Concomitant]
     Active Substance: MAGNESIUM HYDROXIDE
  7. CALCIUM PANTOTHENATE/NICOTINAMIDE/PYRIDOXINE HYDROCHLORIDE/RIBOFLAVIN/THIAMINE HYDROCHLORIDE [Concomitant]
     Active Substance: CALCIUM PANTOTHENATE\NIACINAMIDE\PYRIDOXINE HYDROCHLORIDE\RIBOFLAVIN\THIAMINE HYDROCHLORIDE
  8. DOXEPIN [Concomitant]
     Active Substance: DOXEPIN
     Dosage: 50 TO 75 MG
  9. PHYTOMENADIONE [Concomitant]
     Active Substance: PHYTONADIONE

REACTIONS (1)
  - Drug ineffective [Unknown]
